FAERS Safety Report 24913354 (Version 1)
Quarter: 2025Q1

REPORT INFORMATION
  Report Type: Spontaneous
  Country: US (occurrence: US)
  Receive Date: 20250201
  Receipt Date: 20250201
  Transmission Date: 20250409
  Serious: No
  Sender: ABBVIE
  Company Number: US-ABBVIE-6104645

PATIENT
  Age: 5 Week
  Sex: Male
  Weight: 3 kg

DRUGS (1)
  1. SKYRIZI [Suspect]
     Active Substance: RISANKIZUMAB-RZAA
     Indication: Maternal exposure timing unspecified
     Route: 064

REACTIONS (3)
  - Foetal exposure during pregnancy [Unknown]
  - Weight decreased [Recovered/Resolved]
  - Congenital skin dimples [Not Recovered/Not Resolved]

NARRATIVE: CASE EVENT DATE: 20241201
